FAERS Safety Report 14287682 (Version 3)
Quarter: 2018Q2

REPORT INFORMATION
  Report Type: Spontaneous
  Country: BR (occurrence: BR)
  Receive Date: 20171214
  Receipt Date: 20180501
  Transmission Date: 20180711
  Serious: Yes (Other)
  Sender: FDA-Public Use
  Company Number: BR-ABBVIE-17P-020-2190664-00

PATIENT
  Age: 1 Year
  Sex: Male
  Weight: 16 kg

DRUGS (5)
  1. DEPAKENE [Suspect]
     Active Substance: VALPROIC ACID
     Indication: SEIZURE
     Dosage: DAILY DOSE: 4ML; IN THE MORNING/AT NIGHT
     Route: 048
     Dates: start: 201601
  2. DEPAKENE [Suspect]
     Active Substance: VALPROIC ACID
     Route: 048
     Dates: start: 20171204
  3. DEPAKOTE [Suspect]
     Active Substance: DIVALPROEX SODIUM
     Indication: SEIZURE
     Dosage: 3 CAPSULES IN THE MORNING/ 3 CAPSULE AT NIGHT
     Route: 048
  4. CARBAMAZEPINE. [Suspect]
     Active Substance: CARBAMAZEPINE
     Indication: SEIZURE
     Route: 048
     Dates: start: 201510, end: 201604
  5. COBAVIT [Concomitant]
     Indication: GROWTH RETARDATION
     Route: 048

REACTIONS (21)
  - Head injury [Unknown]
  - Diarrhoea [Recovered/Resolved]
  - Influenza [Recovered/Resolved]
  - Weight increased [Unknown]
  - Pyrexia [Recovered/Resolved]
  - Somnolence [Not Recovered/Not Resolved]
  - Somnolence [Recovering/Resolving]
  - Drug ineffective [Recovered/Resolved]
  - Off label use [Unknown]
  - Drug administered to patient of inappropriate age [Unknown]
  - Drug ineffective [Not Recovered/Not Resolved]
  - Decreased appetite [Recovering/Resolving]
  - Gastrooesophageal reflux disease [Recovered/Resolved]
  - Underdose [Unknown]
  - Exaggerated startle response [Unknown]
  - Infection [Recovered/Resolved]
  - Drug administered to patient of inappropriate age [Unknown]
  - Seizure [Recovered/Resolved]
  - Fall [Unknown]
  - Developmental delay [Recovering/Resolving]
  - Speech disorder [Recovering/Resolving]

NARRATIVE: CASE EVENT DATE: 201601
